FAERS Safety Report 8499979-0 (Version None)
Quarter: 2012Q3

REPORT INFORMATION
  Report Type: 
  Country: None (occurrence: None)
  Receive Date: 20120710
  Receipt Date: 20120627
  Transmission Date: 20120928
  Serious: Yes (Other)
  Sender: FDA-Public Use
  Company Number: US-ELI_LILLY_AND_COMPANY-US201207000714

PATIENT
  Age: 46 Year
  Sex: Female

DRUGS (4)
  1. CONTRACEPTIVES [Concomitant]
  2. DULOXETINE HYDROCHLORIDE [Suspect]
     Dosage: 60 MG, OTHER
     Dates: start: 20120606, end: 20120620
  3. DULOXETINE HYDROCHLORIDE [Suspect]
     Indication: BACK PAIN
     Dosage: 60 MG QD
     Dates: start: 20120201, end: 20120605
  4. DULOXETINE HYDROCHLORIDE [Suspect]
     Dosage: 60 MG, QD
     Dates: start: 20120620

REACTIONS (7)
  - MENISCUS LESION [None]
  - INSOMNIA [None]
  - INAPPROPRIATE SCHEDULE OF DRUG ADMINISTRATION [None]
  - HYPERTENSION [None]
  - PAIN [None]
  - OVERWEIGHT [None]
  - FEELING ABNORMAL [None]
